FAERS Safety Report 5470339-X (Version None)
Quarter: 2007Q3

REPORT INFORMATION
  Report Type: 
  Country: None (occurrence: None)
  Receive Date: 20070925
  Receipt Date: 20070910
  Transmission Date: 20080115
  Serious: Yes (Hospitalization)
  Sender: FDA-Public Use
  Company Number: S07-FRA-05093-01

PATIENT
  Age: 14 Year
  Sex: Female

DRUGS (4)
  1. CITALOPRAM HYDROBROMIDE [Suspect]
     Indication: DEPRESSION
     Dosage: 20 MG QD PO
     Route: 048
     Dates: start: 20070606, end: 20070101
  2. CITALOPRAM HYDROBROMIDE [Suspect]
     Indication: DEPRESSION
     Dosage: 10 MG QD PO
     Route: 048
     Dates: start: 20070101
  3. PRAZEPAM [Concomitant]
  4. TERCIAN (CYAMEMAZINE) [Concomitant]

REACTIONS (2)
  - COMPLEX REGIONAL PAIN SYNDROME [None]
  - HYPOAESTHESIA [None]
